FAERS Safety Report 9034636 (Version 2)
Quarter: 2013Q2

REPORT INFORMATION
  Report Type: Report from Study
  Country: US (occurrence: US)
  Receive Date: 20130128
  Receipt Date: 20130403
  Transmission Date: 20140414
  Serious: Yes (Hospitalization)
  Sender: FDA-Public Use
  Company Number: US-GLAXOSMITHKLINE-A1008854A

PATIENT
  Age: 77 Year
  Sex: 0

DRUGS (10)
  1. COREG [Suspect]
     Dosage: 12.5MG PER DAY
  2. NPH INSULIN [Suspect]
     Indication: TYPE 2 DIABETES MELLITUS
  3. BYSTOLIC [Suspect]
     Dosage: 10MG TWICE PER DAY
  4. DRONEDARONE [Suspect]
  5. INSULIN ASPART [Suspect]
     Indication: TYPE 2 DIABETES MELLITUS
     Dates: start: 20111130
  6. BLINDED TRIAL MEDICATION [Concomitant]
     Indication: TYPE 2 DIABETES MELLITUS
     Dates: start: 20110217, end: 20120601
  7. ASPIRIN [Concomitant]
  8. NIACIN [Concomitant]
  9. LEVOTHYROXINE [Concomitant]
     Dates: start: 20120222
  10. ROBITUSSIN [Concomitant]
     Dates: start: 20120529

REACTIONS (1)
  - Bradycardia [Recovered/Resolved]
